FAERS Safety Report 11647629 (Version 1)
Quarter: 2015Q4

REPORT INFORMATION
  Report Type: Spontaneous
  Country: US (occurrence: None)
  Receive Date: 20151020
  Receipt Date: 20151020
  Transmission Date: 20160304
  Serious: No
  Sender: FDA-Public Use
  Company Number: None

PATIENT
  Age: 26 Year
  Sex: Female
  Weight: 73.48 kg

DRUGS (4)
  1. BUTAL-ACET-CAFF [Concomitant]
  2. WOMENS MULTI VITAMIN [Concomitant]
  3. SUMATRIPTAN 100 MG [Suspect]
     Active Substance: SUMATRIPTAN
     Indication: MIGRAINE
     Route: 048
     Dates: start: 20151018
  4. CYCLOBENZAPRINE [Concomitant]
     Active Substance: CYCLOBENZAPRINE

REACTIONS (9)
  - Pain [None]
  - Cough [None]
  - Hyperhidrosis [None]
  - Dizziness [None]
  - Throat tightness [None]
  - Migraine [None]
  - Muscle twitching [None]
  - Muscle spasms [None]
  - Insomnia [None]

NARRATIVE: CASE EVENT DATE: 20150918
